FAERS Safety Report 24539841 (Version 1)
Quarter: 2024Q4

REPORT INFORMATION
  Report Type: Spontaneous
  Country: IT (occurrence: IT)
  Receive Date: 20241023
  Receipt Date: 20241023
  Transmission Date: 20250115
  Serious: Yes (Other)
  Sender: SANDOZ
  Company Number: IT-NOVPHSZ-PHHY2019IT161250

PATIENT
  Age: 75 Year
  Sex: Female

DRUGS (13)
  1. ZUCLOPENTHIXOL [Suspect]
     Active Substance: ZUCLOPENTHIXOL
     Indication: Psychotic disorder
     Dosage: 1 DF, QD
     Route: 048
     Dates: start: 20190107, end: 20190121
  2. VALPROATE SODIUM [Suspect]
     Active Substance: VALPROATE SODIUM
     Indication: Epilepsy
     Dosage: 300 MG, QD
     Route: 048
     Dates: start: 20190121, end: 20190124
  3. VALPROATE SODIUM [Suspect]
     Active Substance: VALPROATE SODIUM
     Dosage: 300 MG, QD
     Route: 048
     Dates: start: 20190128, end: 20190131
  4. VALPROATE SODIUM [Suspect]
     Active Substance: VALPROATE SODIUM
     Dosage: 900 MG, QD
     Route: 048
     Dates: start: 20190124, end: 20190128
  5. LEVOSULPIRIDE [Suspect]
     Active Substance: LEVOSULPIRIDE
     Indication: Psychotic disorder
     Dosage: 50 MG, QD
     Route: 048
     Dates: start: 20190124, end: 20190128
  6. QUETIAPINE FUMARATE [Suspect]
     Active Substance: QUETIAPINE FUMARATE
     Indication: Psychotic disorder
     Dosage: 25 MG, QD
     Route: 048
     Dates: start: 20190121, end: 20190124
  7. QUETIAPINE FUMARATE [Suspect]
     Active Substance: QUETIAPINE FUMARATE
     Dosage: 25 MG, QD
     Route: 048
     Dates: start: 20190128, end: 20190131
  8. QUETIAPINE FUMARATE [Suspect]
     Active Substance: QUETIAPINE FUMARATE
     Dosage: 50 MG, QD
     Route: 048
     Dates: start: 20190124, end: 20190128
  9. ZOLPIDEM TARTRATE [Suspect]
     Active Substance: ZOLPIDEM TARTRATE
     Dosage: 10 MG, QD
     Route: 048
     Dates: start: 20190124, end: 20190128
  10. ZOLPIDEM TARTRATE [Suspect]
     Active Substance: ZOLPIDEM TARTRATE
     Indication: Insomnia
     Dosage: 5 MG, QD
     Route: 048
     Dates: start: 20190121, end: 20190124
  11. ZOLPIDEM TARTRATE [Suspect]
     Active Substance: ZOLPIDEM TARTRATE
     Dosage: 5 MG, QD
     Route: 048
     Dates: start: 20190128, end: 20190131
  12. TALOFEN [Suspect]
     Active Substance: PROMAZINE HYDROCHLORIDE
     Indication: Psychotic disorder
     Dosage: 10 GTT, QD
     Route: 048
     Dates: start: 20190121, end: 20190131
  13. FLUCONAZOLE [Suspect]
     Active Substance: FLUCONAZOLE
     Indication: Anxiety
     Dosage: 1 DF, QD
     Route: 048
     Dates: start: 20190128, end: 20190131

REACTIONS (4)
  - Bradyphrenia [Recovering/Resolving]
  - Gait disturbance [Recovering/Resolving]
  - Persecutory delusion [Recovering/Resolving]
  - Dysphagia [Recovering/Resolving]

NARRATIVE: CASE EVENT DATE: 20190128
